FAERS Safety Report 24273946 (Version 1)
Quarter: 2024Q3

REPORT INFORMATION
  Report Type: Spontaneous
  Country: ES (occurrence: ES)
  Receive Date: 20240902
  Receipt Date: 20240902
  Transmission Date: 20241017
  Serious: Yes (Hospitalization)
  Sender: TEVA
  Company Number: None

PATIENT
  Age: 88 Year
  Sex: Male

DRUGS (4)
  1. CIPROFLOXACIN [Suspect]
     Active Substance: CIPROFLOXACIN
     Indication: Prostatitis
     Dosage: EVERY 12 HOURS, CIPROFLOXACINO (2049A)
     Route: 048
     Dates: start: 20240325, end: 20240425
  2. ERTAPENEM [Suspect]
     Active Substance: ERTAPENEM
     Indication: Urosepsis
     Dosage: EVERY 24 HOURS, INJECTION PERFUSION
     Route: 042
     Dates: start: 20240508, end: 20240515
  3. FOSFOMYCIN [Suspect]
     Active Substance: FOSFOMYCIN
     Indication: Genitourinary tract infection
     Dosage: TIME INTERVAL: TOTAL: SINGLE DOSE, FOSFOMICINA (1599A
     Route: 048
     Dates: start: 20240516, end: 20240516
  4. AMOXICILLIN\CLAVULANIC ACID [Suspect]
     Active Substance: AMOXICILLIN\CLAVULANIC ACID
     Indication: Intestinal obstruction
     Dosage: 1,000 MG/100 MG INJECTION INFUSION 1 VIAL
     Route: 042
     Dates: start: 20240429, end: 20240513

REACTIONS (1)
  - Clostridium difficile colitis [Unknown]

NARRATIVE: CASE EVENT DATE: 20240524
